FAERS Safety Report 9729128 (Version 1)
Quarter: 2013Q4

REPORT INFORMATION
  Report Type: Spontaneous
  Country: ES (occurrence: ES)
  Receive Date: 20131204
  Receipt Date: 20131204
  Transmission Date: 20140711
  Serious: Yes (Other)
  Sender: FDA-Public Use
  Company Number: PHHY2013ES136801

PATIENT
  Age: 73 Year
  Sex: Female

DRUGS (9)
  1. RANITIDINE [Suspect]
  2. ACETYLSALICYLIC ACID [Concomitant]
  3. LANSOPRAZOLE [Concomitant]
  4. VALSARTAN/HYDROCHLOROTHIAZIDE [Concomitant]
  5. NIFEDIPINE [Concomitant]
  6. ATORVASTATIN [Concomitant]
  7. BISOPROLOL [Concomitant]
  8. DOXAZOSIN [Concomitant]
  9. VILDAGLIPTIN [Concomitant]

REACTIONS (7)
  - Dermatitis contact [Recovering/Resolving]
  - Eczema eyelids [Recovering/Resolving]
  - Skin lesion [Recovering/Resolving]
  - Erythema [Recovering/Resolving]
  - Papule [Recovering/Resolving]
  - Blister [Unknown]
  - Localised infection [Recovering/Resolving]
